FAERS Safety Report 8603233-3 (Version None)
Quarter: 2012Q3

REPORT INFORMATION
  Report Type: 
  Country: None (occurrence: None)
  Receive Date: 20120817
  Receipt Date: 20120716
  Transmission Date: 20120928
  Serious: Yes (Other)
  Sender: FDA-Public Use
  Company Number: CA-JNJFOC-20120708569

PATIENT
  Sex: Female
  Weight: 113 kg

DRUGS (9)
  1. HYDRALAZINE HCL [Concomitant]
     Route: 048
  2. AVALIDE [Concomitant]
     Route: 048
  3. VITAMIN D [Concomitant]
     Route: 048
  4. APO-HYDROXYQUINE [Concomitant]
     Route: 048
  5. STELARA [Suspect]
     Indication: PSORIASIS
     Route: 058
     Dates: start: 20091101
  6. SYNTHROID [Concomitant]
     Route: 048
  7. ATENOLOL [Concomitant]
     Route: 048
  8. HYDROCHLOROTHIAZIDE [Concomitant]
     Route: 048
  9. ALLOPURINOL [Concomitant]
     Route: 048

REACTIONS (2)
  - HYPOTHYROIDISM [None]
  - THYROID NEOPLASM [None]
